FAERS Safety Report 8109196-1 (Version None)
Quarter: 2012Q1

REPORT INFORMATION
  Report Type: 
  Country: None (occurrence: None)
  Receive Date: 20120202
  Receipt Date: 20120104
  Transmission Date: 20120608
  Serious: No
  Sender: FDA-Public Use
  Company Number: US-AMGEN-USASP2012000456

PATIENT
  Sex: Female

DRUGS (2)
  1. ENBREL [Suspect]
     Indication: RHEUMATOID ARTHRITIS
     Dosage: 50 MG, QWK
     Dates: start: 20111001
  2. METHOTREXATE [Concomitant]
     Dosage: UNK

REACTIONS (6)
  - RHEUMATOID ARTHRITIS [None]
  - ALOPECIA [None]
  - URTICARIA [None]
  - DYSGEUSIA [None]
  - DRY MOUTH [None]
  - RASH ERYTHEMATOUS [None]
